FAERS Safety Report 9919576 (Version 2)
Quarter: 2014Q1

REPORT INFORMATION
  Report Type: Report from Study
  Country: MX (occurrence: MX)
  Receive Date: 20140224
  Receipt Date: 20140305
  Transmission Date: 20141002
  Serious: Yes (Other)
  Sender: FDA-Public Use
  Company Number: PHHO2014MX002458

PATIENT
  Sex: 0

DRUGS (13)
  1. LEVOFLOXACIN [Suspect]
     Indication: INFLUENZA
  2. BLINDED AFINITOR [Suspect]
     Indication: DIFFUSE LARGE B-CELL LYMPHOMA
     Dosage: CODE NOT BOKEN
     Dates: start: 20130611, end: 20140210
  3. BLINDED NO TREATMENT RECEIVED [Suspect]
     Indication: DIFFUSE LARGE B-CELL LYMPHOMA
     Dosage: CODE NOT BOKEN
     Dates: start: 20130611, end: 20140210
  4. BLINDED PLACEBO [Suspect]
     Indication: DIFFUSE LARGE B-CELL LYMPHOMA
     Dosage: CODE NOT BOKEN
     Dates: start: 20130611, end: 20140210
  5. BLINDED AFINITOR [Suspect]
     Dosage: CODE NOT BOKEN
     Dates: start: 20140219
  6. BLINDED NO TREATMENT RECEIVED [Suspect]
     Dosage: CODE NOT BOKEN
     Dates: start: 20140219
  7. BLINDED PLACEBO [Suspect]
     Dosage: CODE NOT BOKEN
     Dates: start: 20140219
  8. CO-DIOVAN [Concomitant]
     Indication: HYPERTENSION
     Dosage: 1 DF, DAILY (320/25 MG)
     Route: 048
     Dates: end: 20140210
  9. NEXIUM 1-2-3 [Concomitant]
     Indication: GASTRITIS
     Dosage: 40 MG, QD
     Route: 048
  10. CRESTOR [Concomitant]
     Indication: DYSLIPIDAEMIA
     Dosage: 10 MG, QD
     Route: 048
     Dates: end: 20140210
  11. JANUMET [Concomitant]
     Indication: DIABETES MELLITUS
     Dosage: 1 DF, QD (50/850 MG)
     Route: 048
  12. CONCOR [Concomitant]
     Indication: HYPERTENSION
     Dosage: 2.5 MG, QD
     Route: 048
  13. ALDACTONE-A [Concomitant]
     Indication: HYPERTENSION
     Dosage: 25 MG, QD
     Route: 048
     Dates: end: 20140210

REACTIONS (1)
  - Atrial fibrillation [Recovered/Resolved]
